FAERS Safety Report 5881731-3 (Version None)
Quarter: 2008Q3

REPORT INFORMATION
  Report Type: 
  Country: None (occurrence: None)
  Receive Date: 20080912
  Receipt Date: 20080709
  Transmission Date: 20090109
  Serious: No
  Sender: FDA-Public Use
  Company Number: US-ABBOTT-08P-163-0461981-00

PATIENT
  Sex: Female
  Weight: 102.6 kg

DRUGS (11)
  1. HUMIRA [Suspect]
     Indication: CROHN'S DISEASE
     Dosage: PEN
     Route: 050
     Dates: start: 20080707
  2. ESOMEPRAZOLE MAGNESIUM [Concomitant]
     Indication: GASTROOESOPHAGEAL REFLUX DISEASE
  3. ALPRAZOLAM [Concomitant]
     Indication: ANXIETY
  4. TRAZODONE HCL [Concomitant]
     Indication: FIBROMYALGIA
  5. ESTRATEST H.S. [Concomitant]
     Indication: HORMONE REPLACEMENT THERAPY
     Dates: start: 20030801
  6. DULOXETINE HYDROCHLORIDE [Concomitant]
     Indication: DEPRESSION
  7. METOCLOPRAMIDE [Concomitant]
     Indication: NAUSEA
  8. METOCLOPRAMIDE [Concomitant]
     Indication: VOMITING
  9. OXYMORPHONE HCL [Concomitant]
     Indication: PAIN
  10. NORGESIC [Concomitant]
     Indication: PAIN
     Route: 061
  11. FUROSEMIDE [Concomitant]
     Indication: OEDEMA

REACTIONS (3)
  - ACCIDENTAL EXPOSURE [None]
  - INJECTION SITE HAEMORRHAGE [None]
  - INJECTION SITE PAIN [None]
